FAERS Safety Report 19820268 (Version 2)
Quarter: 2021Q3

REPORT INFORMATION
  Report Type: Report from Study
  Country: IT (occurrence: IT)
  Receive Date: 20210913
  Receipt Date: 20210917
  Transmission Date: 20211014
  Serious: Yes (Other)
  Sender: FDA-Public Use
  Company Number: PHHY2016IT130157

PATIENT
  Age: 25 Year
  Sex: Male

DRUGS (2)
  1. OMNITROPE [Suspect]
     Active Substance: SOMATROPIN
     Indication: GROWTH HORMONE DEFICIENCY
     Dosage: 0.25 MG, 6 DAY/ WEEK
     Route: 058
     Dates: start: 20110119, end: 20151219
  2. OMNITROPE [Suspect]
     Active Substance: SOMATROPIN
     Dosage: 0.214 MG/KG, QD
     Route: 058
     Dates: start: 20110119, end: 20151219

REACTIONS (4)
  - Insulin-like growth factor increased [Unknown]
  - Overdose [Recovered/Resolved]
  - Alanine aminotransferase increased [Not Recovered/Not Resolved]
  - Gamma-glutamyltransferase increased [Not Recovered/Not Resolved]

NARRATIVE: CASE EVENT DATE: 20151127
